FAERS Safety Report 12356338 (Version 1)
Quarter: 2016Q2

REPORT INFORMATION
  Report Type: Spontaneous
  Country: US (occurrence: US)
  Receive Date: 20160511
  Receipt Date: 20160511
  Transmission Date: 20160815
  Serious: No
  Sender: FDA-Public Use
  Company Number: ALCN2016US003232

PATIENT
  Sex: Male

DRUGS (4)
  1. BETADINE [Suspect]
     Active Substance: POVIDONE-IODINE
     Indication: SURGERY
     Dosage: UNK
     Route: 047
     Dates: start: 20160118, end: 20160118
  2. PREDNISOLONE ACETATE. [Suspect]
     Active Substance: PREDNISOLONE ACETATE
     Indication: POSTOPERATIVE CARE
     Route: 047
  3. BSS [Suspect]
     Active Substance: CALCIUM CHLORIDE\MAGNESIUM CHLORIDE\POTASSIUM CHLORIDE\SODIUM ACETATE\SODIUM CHLORIDE\SODIUM CITRATE
     Indication: SURGERY
     Dosage: UNK
     Route: 047
     Dates: start: 20160118, end: 20160118
  4. VIGAMOX [Suspect]
     Active Substance: MOXIFLOXACIN HYDROCHLORIDE
     Indication: SURGERY
     Dosage: UNK
     Route: 047
     Dates: start: 20160118, end: 20160118

REACTIONS (3)
  - Vision blurred [Recovering/Resolving]
  - Product use issue [Recovering/Resolving]
  - Vitreous floaters [Unknown]
